FAERS Safety Report 23722354 (Version 3)
Quarter: 2025Q2

REPORT INFORMATION
  Report Type: Spontaneous
  Country: US (occurrence: US)
  Receive Date: 20240409
  Receipt Date: 20250604
  Transmission Date: 20250717
  Serious: No
  Sender: NOVEN
  Company Number: US-NOVEN PHARMACEUTICALS, INC.-2024-NOV-US000066

PATIENT
  Age: 21 Year
  Sex: Female

DRUGS (3)
  1. XELSTRYM [Suspect]
     Active Substance: DEXTROAMPHETAMINE
     Indication: Attention deficit hyperactivity disorder
     Route: 062
     Dates: start: 20240122
  2. XELSTRYM [Suspect]
     Active Substance: DEXTROAMPHETAMINE
     Route: 062
     Dates: start: 20240104, end: 20240122
  3. EFFEXOR [Concomitant]
     Active Substance: VENLAFAXINE HYDROCHLORIDE
     Indication: Product used for unknown indication
     Route: 048

REACTIONS (3)
  - Application site erythema [Recovered/Resolved]
  - Product adhesion issue [Recovered/Resolved]
  - Product residue present [Recovered/Resolved]
